FAERS Safety Report 26077796 (Version 2)
Quarter: 2025Q4

REPORT INFORMATION
  Report Type: Spontaneous
  Country: US (occurrence: US)
  Receive Date: 20251122
  Receipt Date: 20251229
  Transmission Date: 20260117
  Serious: Yes (Hospitalization, Other)
  Sender: MDD OPERATIONS
  Company Number: US-MDD US Operations-MDD202509-003619

PATIENT
  Age: 75 Year
  Sex: Male

DRUGS (9)
  1. ONAPGO [Suspect]
     Active Substance: APOMORPHINE HYDROCHLORIDE
     Indication: Parkinson^s disease
     Dosage: INITIAL DOSE
     Dates: start: 20250709
  2. ONAPGO [Suspect]
     Active Substance: APOMORPHINE HYDROCHLORIDE
     Dosage: INCREASED DOSE
     Dates: start: 20250826
  3. ONAPGO [Suspect]
     Active Substance: APOMORPHINE HYDROCHLORIDE
     Dosage: DECREASED DOSE
     Dates: start: 20250908
  4. ONAPGO [Suspect]
     Active Substance: APOMORPHINE HYDROCHLORIDE
     Dosage: 2.5 MG PER HOUR
     Dates: start: 20250708
  5. ONAPGO [Suspect]
     Active Substance: APOMORPHINE HYDROCHLORIDE
     Dosage: 16 HOURS A DAY, SERIAL NUMBER FOR DEVICE: AJ1161.24
     Dates: start: 202511
  6. PRAMIPEXOLE [Concomitant]
     Active Substance: PRAMIPEXOLE
     Dosage: NOT PROVIDED
  7. CARBIDOPA [Concomitant]
     Active Substance: CARBIDOPA
     Dosage: NOT PROVIDED
  8. LEVODOPA [Concomitant]
     Active Substance: LEVODOPA
     Dosage: NOT PROVIDED
  9. CREXONT [Concomitant]
     Active Substance: CARBIDOPA\LEVODOPA
     Dosage: NOT PROVIDED

REACTIONS (17)
  - Urinary tract infection [Not Recovered/Not Resolved]
  - Panic attack [Unknown]
  - Hallucination [Recovering/Resolving]
  - Fall [Recovered/Resolved]
  - Face injury [Recovered/Resolved]
  - Visual impairment [Unknown]
  - Walking aid user [Unknown]
  - Loss of personal independence in daily activities [Unknown]
  - Nightmare [Unknown]
  - Confusional state [Recovered/Resolved]
  - Gait disturbance [Unknown]
  - Fall [Unknown]
  - Dyskinesia [Unknown]
  - Fall [Recovered/Resolved]
  - Gait disturbance [Recovering/Resolving]
  - Device issue [Unknown]
  - Product dose omission issue [Unknown]

NARRATIVE: CASE EVENT DATE: 20250901
